FAERS Safety Report 21805733 (Version 1)
Quarter: 2023Q1

REPORT INFORMATION
  Report Type: Spontaneous
  Country: TR (occurrence: TR)
  Receive Date: 20230102
  Receipt Date: 20230102
  Transmission Date: 20230418
  Serious: Yes (Hospitalization)
  Sender: FDA-Public Use
  Company Number: TR-002147023-NVSC2022TR300573

PATIENT
  Sex: Male

DRUGS (1)
  1. SACUBITRIL\VALSARTAN [Suspect]
     Active Substance: SACUBITRIL\VALSARTAN
     Indication: Cardiac failure
     Dosage: 1 DOSAGE FORM, BID (FOR 1 YEARS-4 MONTHS, (1,5 YEARS) AT 11 A.M. AND 11 P.M.)
     Route: 065

REACTIONS (3)
  - Dyspnoea [Unknown]
  - Malaise [Recovering/Resolving]
  - Product supply issue [Unknown]
